FAERS Safety Report 5832202-1 (Version None)
Quarter: 2008Q3

REPORT INFORMATION
  Report Type: 
  Country: None (occurrence: None)
  Receive Date: 20080804
  Receipt Date: 20080728
  Transmission Date: 20090109
  Serious: Yes (Other)
  Sender: FDA-Public Use
  Company Number: US-SANOFI-SYNTHELABO-A01200808795

PATIENT

DRUGS (2)
  1. XELODA [Suspect]
     Dosage: UNK
     Route: 065
  2. OXALIPLATIN [Suspect]
     Indication: COLORECTAL CANCER
     Dosage: UNK
     Route: 065

REACTIONS (1)
  - CHOLECYSTITIS [None]
